FAERS Safety Report 4678051-1 (Version None)
Quarter: 2005Q2

REPORT INFORMATION
  Report Type: 
  Country: None (occurrence: None)
  Receive Date: 20050531
  Receipt Date: 20041123
  Transmission Date: 20051028
  Serious: Yes (Other)
  Sender: FDA-Public Use
  Company Number: US-MERCK-0411USA03732

PATIENT
  Age: 68 Year
  Sex: Male
  Weight: 76 kg

DRUGS (7)
  1. COREG [Concomitant]
     Route: 048
     Dates: start: 20040715
  2. VIOXX [Suspect]
     Indication: OSTEOARTHRITIS
     Route: 048
     Dates: start: 19990101, end: 20041004
  3. VIOXX [Suspect]
     Indication: BACK PAIN
     Route: 048
     Dates: start: 19990101, end: 20041004
  4. NIASPAN [Concomitant]
     Route: 065
     Dates: start: 20040717
  5. LORTAB [Concomitant]
     Route: 065
     Dates: start: 20030630
  6. AMARYL [Concomitant]
     Route: 065
     Dates: start: 20040720
  7. ALTACE [Concomitant]
     Route: 065
     Dates: start: 20040715

REACTIONS (4)
  - ADVERSE EVENT [None]
  - BLOOD DISORDER [None]
  - CORONARY ARTERY DISEASE [None]
  - POLYP [None]
